FAERS Safety Report 17137961 (Version 1)
Quarter: 2019Q4

REPORT INFORMATION
  Report Type: Spontaneous
  Country: US (occurrence: US)
  Receive Date: 20191211
  Receipt Date: 20191211
  Transmission Date: 20200122
  Serious: No
  Sender: FDA-Public Use
  Company Number: US-GLAXOSMITHKLINE-US2019222577

PATIENT
  Age: 83 Year

DRUGS (2)
  1. ABREVA [Suspect]
     Active Substance: DOCOSANOL
     Indication: PRODUCT USED FOR UNKNOWN INDICATION
     Dosage: 2 G
     Route: 065
  2. ABREVA [Suspect]
     Active Substance: DOCOSANOL
     Dosage: UNK
     Route: 065

REACTIONS (3)
  - Skin laceration [Unknown]
  - Product complaint [Unknown]
  - Product package associated injury [Unknown]
